FAERS Safety Report 9292501 (Version 2)
Quarter: 2013Q2

REPORT INFORMATION
  Report Type: Spontaneous
  Country: US (occurrence: US)
  Receive Date: 20130516
  Receipt Date: 20130531
  Transmission Date: 20140414
  Serious: Yes (Other)
  Sender: FDA-Public Use
  Company Number: US-PFIZER INC-2013147463

PATIENT
  Age: 28 Year
  Sex: Male
  Weight: 113 kg

DRUGS (1)
  1. VIAGRA [Suspect]
     Dosage: 300 MG (TOOK 3 TABLETS OF 100MG AT A TIME), UNK
     Route: 048
     Dates: start: 20130512

REACTIONS (4)
  - Incorrect dose administered [Unknown]
  - Genital swelling [Unknown]
  - Genital pain [Unknown]
  - Penis disorder [Unknown]
